FAERS Safety Report 9973990 (Version 1)
Quarter: 2014Q1

REPORT INFORMATION
  Report Type: Report from Study
  Country: US (occurrence: US)
  Receive Date: 20140306
  Receipt Date: 20140306
  Transmission Date: 20141002
  Serious: No
  Sender: FDA-Public Use
  Company Number: US-ABBVIE-13P-163-1155159-00

PATIENT
  Age: 42 Year
  Sex: Female

DRUGS (2)
  1. HUMIRA [Suspect]
     Indication: PRODUCT USED FOR UNKNOWN INDICATION
     Dosage: STARTER PACK
     Dates: start: 20130915, end: 20130915
  2. HUMIRA [Suspect]
     Dosage: STARTER PACK
     Dates: start: 20130927, end: 20130927

REACTIONS (1)
  - Erythema multiforme [Unknown]
